FAERS Safety Report 4318412-3 (Version None)
Quarter: 2004Q1

REPORT INFORMATION
  Report Type: 
  Country: None (occurrence: None)
  Receive Date: 20040315
  Receipt Date: 20040302
  Transmission Date: 20041129
  Serious: Yes (Hospitalization)
  Sender: FDA-Public Use
  Company Number: K200400282

PATIENT
  Age: 85 Year
  Sex: Female

DRUGS (1)
  1. ALTACE [Suspect]
     Dosage: 2.5 MG, QD, ORAL
     Route: 048
     Dates: start: 20031231, end: 20040116

REACTIONS (5)
  - ABASIA [None]
  - ANAEMIA [None]
  - ANOREXIA [None]
  - COORDINATION ABNORMAL [None]
  - LETHARGY [None]
